FAERS Safety Report 17236671 (Version 1)
Quarter: 2020Q1

REPORT INFORMATION
  Report Type: Spontaneous
  Country: IT (occurrence: IT)
  Receive Date: 20200106
  Receipt Date: 20200106
  Transmission Date: 20200409
  Serious: Yes (Death)
  Sender: FDA-Public Use
  Company Number: NVSC2020IT001004

PATIENT
  Age: 79 Year
  Sex: Male

DRUGS (2)
  1. METHOTREXATE. [Suspect]
     Active Substance: METHOTREXATE
     Indication: SQUAMOUS CELL CARCINOMA
     Dosage: UNK (2 APPLICATIONS)
     Route: 026
  2. PEMBROLIZUMAB. [Suspect]
     Active Substance: PEMBROLIZUMAB
     Indication: SQUAMOUS CELL CARCINOMA
     Dosage: 2 MG/KG, SEVENTH CYCLE
     Route: 042

REACTIONS (4)
  - Squamous cell carcinoma [Fatal]
  - Malignant neoplasm progression [Fatal]
  - Cachexia [Fatal]
  - Product use in unapproved indication [Unknown]
